FAERS Safety Report 6464735-1 (Version None)
Quarter: 2009Q4

REPORT INFORMATION
  Report Type: 
  Country: None (occurrence: None)
  Receive Date: 20091124
  Receipt Date: 20091112
  Transmission Date: 20100525
  Serious: Yes (Hospitalization)
  Sender: FDA-Public Use
  Company Number: 8054612

PATIENT
  Age: 50 Year
  Sex: Female
  Weight: 54.5 kg

DRUGS (2)
  1. CIMZIA [Suspect]
     Indication: CROHN'S DISEASE
     Dosage: 400 MG SC
     Route: 058
     Dates: start: 20090501
  2. VITAMIN B-12 [Concomitant]

REACTIONS (1)
  - ABDOMINAL ABSCESS [None]
